APPROVED DRUG PRODUCT: FLURAZEPAM HYDROCHLORIDE
Active Ingredient: FLURAZEPAM HYDROCHLORIDE
Strength: 15MG
Dosage Form/Route: CAPSULE;ORAL
Application: A072368 | Product #001 | TE Code: AB
Applicant: CHARTWELL RX SCIENCES LLC
Approved: Mar 30, 1989 | RLD: No | RS: No | Type: RX